FAERS Safety Report 6464748-X (Version None)
Quarter: 2009Q4

REPORT INFORMATION
  Report Type: 
  Country: None (occurrence: None)
  Receive Date: 20091124
  Receipt Date: 20091112
  Transmission Date: 20100525
  Serious: Yes (Disabling, Other)
  Sender: FDA-Public Use
  Company Number: 002452

PATIENT
  Sex: Female
  Weight: 70.4 kg

DRUGS (9)
  1. ROTIGOTINE [Suspect]
     Indication: PARKINSONISM
     Dosage: 2 MG QD TRANSDERMAL
     Route: 062
     Dates: start: 20070101, end: 20080101
  2. NEURONTIN [Concomitant]
  3. THYROID TAB [Concomitant]
  4. QVAR 40 [Concomitant]
  5. REQUIP [Concomitant]
  6. AMBIEN CR [Concomitant]
  7. FLONASE [Concomitant]
  8. ATIVAN [Concomitant]
  9. PREDNISOLONE [Concomitant]

REACTIONS (7)
  - BEDRIDDEN [None]
  - BLOOD PRESSURE INCREASED [None]
  - GAIT DISTURBANCE [None]
  - IMPAIRED WORK ABILITY [None]
  - MENINGITIS [None]
  - MUSCLE RIGIDITY [None]
  - PRODUCT ADHESION ISSUE [None]
